FAERS Safety Report 14992356 (Version 1)
Quarter: 2018Q2

REPORT INFORMATION
  Report Type: Spontaneous
  Country: DE (occurrence: DE)
  Receive Date: 20180609
  Receipt Date: 20180609
  Transmission Date: 20180711
  Serious: Yes (Hospitalization)
  Sender: FDA-Public Use
  Company Number: DE-TEVA-2018-DE-903186

PATIENT
  Age: 53 Year
  Sex: Female
  Weight: 45 kg

DRUGS (6)
  1. LEVOTHYROXIN [Concomitant]
     Active Substance: LEVOTHYROXINE
     Dosage: 1-0-0-0
     Route: 048
  2. PANTOPRAZOL [Concomitant]
     Active Substance: PANTOPRAZOLE SODIUM
     Dosage: 0-0-0-1
     Route: 048
  3. CISPLATIN. [Suspect]
     Active Substance: CISPLATIN
     Route: 065
  4. METAMIZOL [Concomitant]
     Active Substance: METAMIZOLE SODIUM
     Dosage: REQUIREMENT
     Route: 048
  5. GEMCITABINE [Suspect]
     Active Substance: GEMCITABINE\GEMCITABINE HYDROCHLORIDE
     Route: 065
  6. TRIACYLGLYCEROLLIPASE [Concomitant]
     Dosage: 40000 IE, 1-1-1-0
     Route: 048

REACTIONS (3)
  - Nausea [Unknown]
  - Vomiting [Unknown]
  - Abdominal pain [Unknown]
